FAERS Safety Report 21054921 (Version 1)
Quarter: 2022Q3

REPORT INFORMATION
  Report Type: Spontaneous
  Country: US (occurrence: US)
  Receive Date: 20220707
  Receipt Date: 20220707
  Transmission Date: 20221027
  Serious: No
  Sender: FDA-Public Use
  Company Number: US-Teikoku Pharma USA-TPU2022-00568

PATIENT
  Sex: Female
  Weight: 53.118 kg

DRUGS (1)
  1. LIDOCAINE PATCH [Suspect]
     Active Substance: LIDOCAINE
     Indication: Procedural pain
     Dosage: TWO TO THREE PATCHES APPLIED TO THE BACK IN DIFFERENT PLACES
     Route: 061
     Dates: start: 2010

REACTIONS (1)
  - Product availability issue [Unknown]
